FAERS Safety Report 20165294 (Version 3)
Quarter: 2022Q1

REPORT INFORMATION
  Report Type: Spontaneous
  Country: US (occurrence: US)
  Receive Date: 20211209
  Receipt Date: 20220121
  Transmission Date: 20220423
  Serious: Yes (Other)
  Sender: FDA-Public Use
  Company Number: US-PFIZER INC-202101664226

PATIENT
  Age: 74 Year
  Sex: Female

DRUGS (3)
  1. METRONIDAZOLE [Suspect]
     Active Substance: METRONIDAZOLE
     Indication: Giardiasis
     Dosage: UNK
  2. MEMANTINE [Suspect]
     Active Substance: MEMANTINE
     Indication: Giardiasis
     Dosage: UNK
  3. PAROMOMYCIN SULFATE [Concomitant]
     Active Substance: PAROMOMYCIN SULFATE
     Indication: Giardiasis
     Dosage: UNK

REACTIONS (2)
  - Drug-induced liver injury [Recovering/Resolving]
  - Off label use [Unknown]
